FAERS Safety Report 14620526 (Version 1)
Quarter: 2018Q1

REPORT INFORMATION
  Report Type: Spontaneous
  Country: US (occurrence: US)
  Receive Date: 20180309
  Receipt Date: 20180309
  Transmission Date: 20180509
  Serious: Yes (Hospitalization)
  Sender: FDA-Public Use
  Company Number: None

PATIENT
  Sex: Female

DRUGS (6)
  1. HYOMAX [Concomitant]
     Active Substance: HYOSCYAMINE SULFATE
  2. ONDANSETRON [Concomitant]
     Active Substance: ONDANSETRON
  3. METHOTREXATE. [Concomitant]
     Active Substance: METHOTREXATE
  4. LOMOTIL [Concomitant]
     Active Substance: ATROPINE SULFATE\DIPHENOXYLATE HYDROCHLORIDE
  5. STELARA [Suspect]
     Active Substance: USTEKINUMAB
     Indication: CROHN^S DISEASE
     Dosage: 90 MG Q 8 WKS SC
     Route: 058
     Dates: start: 20170614
  6. ZOLPIDEM [Concomitant]
     Active Substance: ZOLPIDEM\ZOLPIDEM TARTRATE

REACTIONS (2)
  - Chest pain [None]
  - Fall [None]

NARRATIVE: CASE EVENT DATE: 2018
